FAERS Safety Report 4297645-9 (Version None)
Quarter: 2004Q1

REPORT INFORMATION
  Report Type: 
  Country: None (occurrence: None)
  Receive Date: 20040213
  Receipt Date: 20040209
  Transmission Date: 20041129
  Serious: Yes (Other)
  Sender: FDA-Public Use
  Company Number: 2004198431US

PATIENT
  Age: 41 Year
  Sex: Male

DRUGS (6)
  1. CELEBREX [Suspect]
     Dosage: 200 MG, ORAL
     Route: 048
     Dates: start: 20040115
  2. ZOLOFT [Suspect]
     Dosage: SEE IMAGE
     Route: 048
     Dates: start: 20021201
  3. VIAGRA [Suspect]
     Dosage: 100 MG, ORAL
     Route: 048
     Dates: start: 20030601
  4. COMBIVIR [Concomitant]
  5. SUSTIVA [Concomitant]
  6. TRAZODONE HCL [Concomitant]

REACTIONS (2)
  - FACIAL PALSY [None]
  - HIV TEST POSITIVE [None]
